FAERS Safety Report 6993006-X (Version None)
Quarter: 2010Q3

REPORT INFORMATION
  Report Type: 
  Country: None (occurrence: None)
  Receive Date: 20100917
  Receipt Date: 20100914
  Transmission Date: 20110219
  Serious: Yes (Death, Hospitalization)
  Sender: FDA-Public Use
  Company Number: FR-BRISTOL-MYERS SQUIBB COMPANY-15286503

PATIENT
  Age: 78 Year
  Sex: Female

DRUGS (7)
  1. COAPROVEL TABS 150MG/12.5MG [Suspect]
     Indication: HYPERTENSION
     Dosage: 1DF=150MG/12.5MG 1 TABLET
     Route: 048
     Dates: start: 20080101
  2. NEXIUM [Suspect]
     Indication: GASTROOESOPHAGEAL REFLUX DISEASE
     Dosage: 1 TABLET DAILY
  3. FORLAX [Suspect]
     Indication: CONSTIPATION
     Dosage: 2 SACHETS DAILY
  4. TRIMEBUTINE [Suspect]
     Indication: INTESTINAL FUNCTIONAL DISORDER
     Dosage: 1TABLET DAILY
  5. SERC [Suspect]
     Indication: DIZZINESS
     Dosage: 1 TABLET 3 TIMES PER DAY
  6. OROCAL [Suspect]
     Dosage: 1DF=1 INTAKE
  7. PROPOFAN [Suspect]
     Indication: OSTEOARTHRITIS
     Dosage: 1DF= 2 TABLETS

REACTIONS (2)
  - ACUTE RESPIRATORY DISTRESS SYNDROME [None]
  - PANCREATITIS NECROTISING [None]
